FAERS Safety Report 10095641 (Version 2)
Quarter: 2014Q2

REPORT INFORMATION
  Report Type: Spontaneous
  Country: US (occurrence: US)
  Receive Date: 20140422
  Receipt Date: 20140422
  Transmission Date: 20141212
  Serious: No
  Sender: FDA-Public Use
  Company Number: US-GILEAD-2012-0058476

PATIENT
  Sex: Female

DRUGS (4)
  1. LETAIRIS [Suspect]
     Indication: PULMONARY HYPERTENSION
     Dosage: 5 MG, UNK
     Route: 048
     Dates: start: 20120710, end: 20120822
  2. LETAIRIS [Suspect]
     Indication: RHEUMATOID ARTHRITIS
  3. FUROSEMIDE [Concomitant]
  4. SPIRONOLACTONE [Concomitant]

REACTIONS (9)
  - Wound [Unknown]
  - Secretion discharge [Unknown]
  - Arthritis [Unknown]
  - Renal disorder [Unknown]
  - Dyspnoea [Unknown]
  - Swelling [Unknown]
  - Oedema peripheral [Unknown]
  - Oedema [Unknown]
  - Fluid retention [Unknown]
